APPROVED DRUG PRODUCT: CAFFEINE CITRATE
Active Ingredient: CAFFEINE CITRATE
Strength: EQ 30MG BASE/3ML (EQ 10MG BASE/ML)
Dosage Form/Route: SOLUTION;INTRAVENOUS
Application: A207400 | Product #001 | TE Code: AP
Applicant: MICRO LABS LTD
Approved: Dec 14, 2017 | RLD: No | RS: No | Type: RX